FAERS Safety Report 10052450 (Version 1)
Quarter: 2014Q2

REPORT INFORMATION
  Report Type: Spontaneous
  Country: US (occurrence: US)
  Receive Date: 20140402
  Receipt Date: 20140402
  Transmission Date: 20141212
  Serious: Yes (Death)
  Sender: FDA-Public Use
  Company Number: US-ASTELLAS-2014US003327

PATIENT
  Age: 71 Year
  Sex: Female

DRUGS (1)
  1. TARCEVA [Suspect]
     Indication: MALIGNANT RESPIRATORY TRACT NEOPLASM
     Dosage: 100 MG TABLET ONE PER ONE DAY WITH TWO 25 MG TABLETS.
     Route: 048
     Dates: start: 201104, end: 20140317

REACTIONS (1)
  - Death [Fatal]
